FAERS Safety Report 8114219-X (Version None)
Quarter: 2012Q1

REPORT INFORMATION
  Report Type: 
  Country: None (occurrence: None)
  Receive Date: 20120205
  Receipt Date: 20120202
  Transmission Date: 20120608
  Serious: Yes (Other)
  Sender: FDA-Public Use
  Company Number: IT-BRISTOL-MYERS SQUIBB COMPANY-16362436

PATIENT
  Age: 70 Year
  Sex: Male

DRUGS (2)
  1. COUMADIN [Suspect]
     Route: 048
     Dates: start: 20111103, end: 20111104
  2. ASPIRIN [Suspect]
     Route: 048
     Dates: start: 20111103, end: 20111104

REACTIONS (2)
  - BLOOD PRESSURE INCREASED [None]
  - EPISTAXIS [None]
